FAERS Safety Report 23148567 (Version 1)
Quarter: 2023Q4

REPORT INFORMATION
  Report Type: Spontaneous
  Country: US (occurrence: None)
  Receive Date: 20231103
  Receipt Date: 20231103
  Transmission Date: 20240110
  Serious: Yes (Life-Threatening)
  Sender: FDA-Public Use
  Company Number: None

PATIENT
  Age: 39 Year
  Sex: Male
  Weight: 81 kg

DRUGS (3)
  1. GABAPENTIN [Suspect]
     Active Substance: GABAPENTIN
     Indication: Sleep disorder
     Dates: start: 20220831, end: 20231103
  2. GABAPENTIN [Suspect]
     Active Substance: GABAPENTIN
     Indication: Anxiety
  3. CLONAZEPAM [Concomitant]
     Active Substance: CLONAZEPAM

REACTIONS (12)
  - Palpitations [None]
  - Hemihypoaesthesia [None]
  - Swollen tongue [None]
  - Dysgeusia [None]
  - Chest discomfort [None]
  - Panic attack [None]
  - Coordination abnormal [None]
  - Tremor [None]
  - Balance disorder [None]
  - Wheezing [None]
  - Vocal cord dysfunction [None]
  - Withdrawal syndrome [None]

NARRATIVE: CASE EVENT DATE: 20220901
